FAERS Safety Report 5019900-7 (Version None)
Quarter: 2006Q2

REPORT INFORMATION
  Report Type: 
  Country: None (occurrence: None)
  Receive Date: 20060605
  Receipt Date: 20060605
  Transmission Date: 20061013
  Serious: Yes (Life-Threatening, Hospitalization)
  Sender: FDA-Public Use
  Company Number: None

PATIENT
  Age: 76 Year
  Sex: Female
  Weight: 69.8539 kg

DRUGS (3)
  1. NOVANTRONE [Suspect]
     Indication: NON-HODGKIN'S LYMPHOMA
     Dosage: 12 MG/M2  EVERY 3 WKS  IV
     Route: 042
     Dates: start: 20060112, end: 20060224
  2. NOVANTRONE [Suspect]
     Indication: NON-HODGKIN'S LYMPHOMA
     Dosage: 12 MG/M2  EVERY 3 WKS  IV
     Route: 042
     Dates: start: 20060202, end: 20060316
  3. NOVANTRONE [Concomitant]

REACTIONS (1)
  - CARDIAC FAILURE [None]
